FAERS Safety Report 9744777 (Version 5)
Quarter: 2014Q1

REPORT INFORMATION
  Report Type: Report from Study
  Country: GB (occurrence: GB)
  Receive Date: 20131210
  Receipt Date: 20140319
  Transmission Date: 20141002
  Serious: Yes (Death)
  Sender: FDA-Public Use
  Company Number: GB-ROCHE-GNE293797

PATIENT
  Age: 5 Year
  Sex: Male

DRUGS (1)
  1. ALTEPLASE [Suspect]
     Indication: INTRACRANIAL VENOUS SINUS THROMBOSIS
     Dosage: UNK
     Route: 065

REACTIONS (1)
  - Intracranial pressure increased [Fatal]
